FAERS Safety Report 4575768-4 (Version None)
Quarter: 2005Q1

REPORT INFORMATION
  Report Type: 
  Country: None (occurrence: None)
  Receive Date: 20050128
  Receipt Date: 20050128
  Transmission Date: 20050727
  Serious: No
  Sender: FDA-Public Use
  Company Number: None

PATIENT
  Sex: Female

DRUGS (1)
  1. CARBAMAZEPINE [Suspect]
     Indication: CONVULSION
     Dosage: 200 MG TWO Q AM , ONE Q PM
     Dates: start: 19700101

REACTIONS (4)
  - CONDITION AGGRAVATED [None]
  - CONVULSION [None]
  - DRUG EFFECT DECREASED [None]
  - PHARMACEUTICAL PRODUCT COMPLAINT [None]
